FAERS Safety Report 4655986-7 (Version None)
Quarter: 2005Q2

REPORT INFORMATION
  Report Type: 
  Country: None (occurrence: None)
  Receive Date: 20050505
  Receipt Date: 20050329
  Transmission Date: 20051028
  Serious: Yes (Other)
  Sender: FDA-Public Use
  Company Number: AWBNIASPAND2004-10

PATIENT
  Age: 65 Year
  Sex: Female

DRUGS (9)
  1. NIASPAN [Suspect]
     Indication: DYSLIPIDAEMIA
     Dosage: 500 MG QD PO
     Route: 048
     Dates: start: 20040706, end: 20040706
  2. NIASPAN [Suspect]
     Indication: HYPERLIPIDAEMIA
     Dosage: 500 MG QD PO
     Route: 048
     Dates: start: 20040706, end: 20040706
  3. LISINOPRIL [Concomitant]
  4. MOLSIDOMINE [Concomitant]
  5. ATORVASTATIN CALCIUM [Concomitant]
  6. BISOPROLOL FUMARATE [Concomitant]
  7. OPIPRAMOL HYDROCHLORIDE [Concomitant]
  8. PRAVASTATIN SODIUM [Concomitant]
  9. ACETYL SALICYLIC ACID USP BAT [Concomitant]

REACTIONS (5)
  - BLOOD PRESSURE DECREASED [None]
  - FLUSHING [None]
  - HYPERTENSIVE CRISIS [None]
  - TACHYCARDIA [None]
  - URTICARIA [None]
